FAERS Safety Report 7098712-7 (Version None)
Quarter: 2010Q4

REPORT INFORMATION
  Report Type: 
  Country: None (occurrence: None)
  Receive Date: 20101112
  Receipt Date: 20080401
  Transmission Date: 20110411
  Serious: No
  Sender: FDA-Public Use
  Company Number: US-KINGPHARMUSA00001-K200800399

PATIENT
  Sex: Female

DRUGS (2)
  1. SKELAXIN [Suspect]
     Indication: BACK PAIN
     Dosage: 800 MG, BID
     Route: 048
     Dates: start: 20080327, end: 20080329
  2. ETODOLAC [Suspect]
     Indication: BACK PAIN
     Dosage: 400 MG, QHS
     Route: 048
     Dates: start: 20080326, end: 20080328

REACTIONS (2)
  - RASH PAPULAR [None]
  - RASH PRURITIC [None]
